FAERS Safety Report 8446525-3 (Version None)
Quarter: 2012Q2

REPORT INFORMATION
  Report Type: 
  Country: None (occurrence: None)
  Receive Date: 20120618
  Receipt Date: 20120608
  Transmission Date: 20120825
  Serious: Yes (Hospitalization)
  Sender: FDA-Public Use
  Company Number: US-MERCK-1204USA03178

PATIENT
  Age: 41 Year
  Sex: Female

DRUGS (3)
  1. PREVACID [Concomitant]
     Route: 065
     Dates: start: 20010301, end: 20110401
  2. FOSAMAX [Suspect]
     Indication: OSTEOPOROSIS PROPHYLAXIS
     Route: 048
     Dates: start: 20020101, end: 20110101
  3. FOSAMAX [Suspect]
     Indication: OSTEOPENIA
     Route: 048
     Dates: start: 20020101, end: 20110101

REACTIONS (32)
  - UROSEPSIS [None]
  - EXOSTOSIS [None]
  - PELVIC MASS [None]
  - BACTERIAL DISEASE CARRIER [None]
  - URINARY TRACT INFECTION [None]
  - SYRINGOMYELIA [None]
  - PAIN [None]
  - CONSTIPATION [None]
  - QUADRIPARESIS [None]
  - HYPOKALAEMIA [None]
  - MYELOPROLIFERATIVE DISORDER [None]
  - DYSLIPIDAEMIA [None]
  - STAPHYLOCOCCAL INFECTION [None]
  - PYELONEPHRITIS [None]
  - SLEEP ATTACKS [None]
  - DIABETES MELLITUS [None]
  - RESPIRATORY FAILURE [None]
  - ANAEMIA [None]
  - DECUBITUS ULCER [None]
  - NEPHROLITHIASIS [None]
  - PNEUMONIA ASPIRATION [None]
  - FEBRILE INFECTION [None]
  - BONE MARROW FAILURE [None]
  - ENTEROCOCCAL INFECTION [None]
  - VITAMIN D DEFICIENCY [None]
  - BREAST NECROSIS [None]
  - DYSAESTHESIA [None]
  - CALCIUM DEFICIENCY [None]
  - FEMUR FRACTURE [None]
  - GASTRIC DILATATION [None]
  - METABOLIC ACIDOSIS [None]
  - ASTHENIA [None]
